FAERS Safety Report 25014745 (Version 1)
Quarter: 2025Q1

REPORT INFORMATION
  Report Type: Spontaneous
  Country: GB (occurrence: GB)
  Receive Date: 20250226
  Receipt Date: 20250226
  Transmission Date: 20250408
  Serious: Yes (Disabling)
  Sender: ELI LILLY AND COMPANY
  Company Number: None

PATIENT
  Sex: Female

DRUGS (2)
  1. MOUNJARO [Suspect]
     Active Substance: TIRZEPATIDE
     Indication: Product used for unknown indication
     Dosage: 2.5 MG, WEEKLY (1/W)
     Route: 065
     Dates: start: 20250123
  2. CEPHALORIDINE [Concomitant]
     Active Substance: CEPHALORIDINE
     Indication: Product used for unknown indication
     Dates: start: 2014

REACTIONS (3)
  - Insomnia [Not Recovered/Not Resolved]
  - Feeling cold [Unknown]
  - Fatigue [Unknown]

NARRATIVE: CASE EVENT DATE: 20250123
